FAERS Safety Report 9902723 (Version 1)
Quarter: 2014Q1

REPORT INFORMATION
  Report Type: Report from Study
  Country: CA (occurrence: CA)
  Receive Date: 20140217
  Receipt Date: 20140217
  Transmission Date: 20141002
  Serious: Yes (Other)
  Sender: FDA-Public Use
  Company Number: CA-JNJFOC-20140207925

PATIENT
  Age: 61 Year
  Sex: Male
  Weight: 86 kg

DRUGS (6)
  1. REMICADE [Suspect]
     Indication: CROHN^S DISEASE
     Route: 042
     Dates: start: 20131107
  2. ASACOL [Concomitant]
     Route: 065
  3. RABEPRAZOLE [Concomitant]
     Route: 065
  4. ROSUVASTATIN [Concomitant]
     Route: 065
  5. ELAVIL [Concomitant]
     Route: 065
  6. SALOFALK [Concomitant]
     Route: 065

REACTIONS (2)
  - Haematochezia [Not Recovered/Not Resolved]
  - Diarrhoea [Not Recovered/Not Resolved]
